FAERS Safety Report 8785191 (Version 1)
Quarter: 2012Q4

REPORT INFORMATION
  Report Type: 
  Country: FI (occurrence: FI)
  Receive Date: 20120914
  Receipt Date: 20120914
  Transmission Date: 20130627
  Serious: No
  Sender: FDA-Public Use
  Company Number: FI-JNJFOC-20120900188

PATIENT
  Age: 58 Year
  Sex: Male

DRUGS (2)
  1. DUROGESIC [Suspect]
     Indication: PAIN MANAGEMENT
     Route: 062
  2. OXYNORM [Concomitant]
     Dosage: 10+5 mg
     Route: 065

REACTIONS (5)
  - Hyperhidrosis [Unknown]
  - Wrong technique in drug usage process [Unknown]
  - Product quality issue [Unknown]
  - Drug ineffective [Unknown]
  - Product quality issue [Unknown]
